FAERS Safety Report 5621904-8 (Version None)
Quarter: 2008Q1

REPORT INFORMATION
  Report Type: 
  Country: None (occurrence: None)
  Receive Date: 20080211
  Receipt Date: 20080108
  Transmission Date: 20080703
  Serious: Yes (Other)
  Sender: FDA-Public Use
  Company Number: US-BRISTOL-MYERS SQUIBB COMPANY-14035703

PATIENT
  Sex: Female

DRUGS (1)
  1. IXEMPRA [Suspect]
     Dosage: 2ND DOSAGE OF IXEMPRA ON DEC 2007
     Dates: start: 20071201

REACTIONS (2)
  - SYNCOPE [None]
  - TREMOR [None]
